FAERS Safety Report 11875178 (Version 1)
Quarter: 2015Q4

REPORT INFORMATION
  Report Type: Spontaneous
  Country: US (occurrence: None)
  Receive Date: 20151228
  Receipt Date: 20151228
  Transmission Date: 20160305
  Serious: Yes (Hospitalization)
  Sender: FDA-Public Use
  Company Number: None

PATIENT
  Age: 76 Year
  Sex: Male
  Weight: 68.3 kg

DRUGS (1)
  1. SODIUM CHLORIDE. [Suspect]
     Active Substance: SODIUM CHLORIDE
     Indication: ACUTE KIDNEY INJURY
     Dosage: OTHER IV
     Route: 042
     Dates: start: 20151119, end: 20151122

REACTIONS (12)
  - Blood creatinine increased [None]
  - Cardiogenic shock [None]
  - Fluid overload [None]
  - Sepsis [None]
  - Liver function test abnormal [None]
  - No therapeutic response [None]
  - Incorrect dose administered [None]
  - Incorrect drug administration duration [None]
  - Oliguria [None]
  - Fall [None]
  - Blood lactic acid increased [None]
  - Azotaemia [None]

NARRATIVE: CASE EVENT DATE: 20151122
